FAERS Safety Report 13871016 (Version 5)
Quarter: 2017Q4

REPORT INFORMATION
  Report Type: Spontaneous
  Country: DE (occurrence: DE)
  Receive Date: 20170816
  Receipt Date: 20171026
  Transmission Date: 20180320
  Serious: Yes (Other)
  Sender: FDA-Public Use
  Company Number: DE-GLAXOSMITHKLINE-DE2017GSK125798

PATIENT
  Age: 65 Year
  Sex: Female

DRUGS (5)
  1. SELEGILIN [Concomitant]
     Active Substance: SELEGILINE
  2. L-THYROXIN [Concomitant]
     Active Substance: LEVOTHYROXINE SODIUM
  3. REQUIP [Suspect]
     Active Substance: ROPINIROLE HYDROCHLORIDE
     Indication: PARKINSON^S DISEASE
     Dosage: 6 MG, BID
     Dates: start: 2011, end: 20170619
  4. AMANTADIN [Concomitant]
     Active Substance: AMANTADINE
  5. MADOPAR [Concomitant]
     Active Substance: BENSERAZIDE HYDROCHLORIDE\LEVODOPA
     Indication: PARKINSON^S DISEASE
     Dosage: 2 DF, TID
     Dates: start: 2006

REACTIONS (9)
  - Parkinson^s disease [Recovered/Resolved]
  - Product quality issue [Unknown]
  - Tremor [Recovered/Resolved]
  - Oedema peripheral [Recovered/Resolved]
  - Drug ineffective [Recovered/Resolved]
  - Product intolerance [Unknown]
  - Product use issue [Unknown]
  - Blood pressure decreased [Recovered/Resolved]
  - Fatigue [Recovered/Resolved]

NARRATIVE: CASE EVENT DATE: 201706
